FAERS Safety Report 9322839 (Version 1)
Quarter: 2013Q2

REPORT INFORMATION
  Report Type: Spontaneous
  Country: GB (occurrence: GB)
  Receive Date: 20130602
  Receipt Date: 20130602
  Transmission Date: 20140414
  Serious: Yes (Death, Congenital Anomaly, Other)
  Sender: FDA-Public Use
  Company Number: GB-BRISTOL-MYERS SQUIBB COMPANY-18946020

PATIENT
  Sex: 0

DRUGS (5)
  1. EXENATIDE [Suspect]
     Route: 064
     Dates: end: 20121114
  2. NOVORAPID [Concomitant]
     Route: 064
  3. METFORMIN [Concomitant]
     Route: 064
  4. FOLIC ACID [Concomitant]
     Route: 064
  5. INSULATARD HM [Concomitant]
     Route: 064

REACTIONS (3)
  - Foetal death [Fatal]
  - Congenital aortic stenosis [Not Recovered/Not Resolved]
  - Heart disease congenital [Not Recovered/Not Resolved]
